FAERS Safety Report 8932542 (Version 1)
Quarter: 2012Q4

REPORT INFORMATION
  Report Type: Spontaneous
  Country: US (occurrence: None)
  Receive Date: 20121126
  Receipt Date: 20121126
  Transmission Date: 20130627
  Serious: No
  Sender: FDA-Public Use
  Company Number: None

PATIENT
  Age: 54 Year
  Sex: Male

DRUGS (2)
  1. TYSABRI [Suspect]
     Dosage: 300mg q4wks IV
     Route: 042
     Dates: start: 20110810
  2. TYSABRI [Suspect]
     Dates: start: 20121009

REACTIONS (1)
  - Therapy cessation [None]
